FAERS Safety Report 19785926 (Version 3)
Quarter: 2025Q1

REPORT INFORMATION
  Report Type: Spontaneous
  Country: IT (occurrence: IT)
  Receive Date: 20210903
  Receipt Date: 20250206
  Transmission Date: 20250409
  Serious: Yes (Hospitalization)
  Sender: ROCHE
  Company Number: IT-DRREDDYS-LIT/ITL/21/0139420

PATIENT
  Age: 77 Year
  Sex: Female

DRUGS (5)
  1. RITUXIMAB [Suspect]
     Active Substance: RITUXIMAB
     Indication: Gastrointestinal lymphoma
     Route: 065
  2. RITUXIMAB [Suspect]
     Active Substance: RITUXIMAB
     Route: 065
  3. BENDAMUSTINE [Suspect]
     Active Substance: BENDAMUSTINE
     Indication: Gastrointestinal lymphoma
     Route: 065
  4. MESALAMINE [Suspect]
     Active Substance: MESALAMINE
     Indication: Colitis ulcerative
     Route: 065
  5. COVID-19 CONVALESCENT PLASMA [Concomitant]
     Active Substance: COVID-19 CONVALESCENT PLASMA
     Indication: COVID-19

REACTIONS (1)
  - Post-acute COVID-19 syndrome [Recovered/Resolved]
